FAERS Safety Report 5560107-2 (Version None)
Quarter: 2007Q4

REPORT INFORMATION
  Report Type: 
  Country: None (occurrence: None)
  Receive Date: 20071214
  Receipt Date: 20071028
  Transmission Date: 20080405
  Serious: No
  Sender: FDA-Public Use
  Company Number: US-ABBOTT-07P-163-0422493-00

PATIENT
  Sex: Male
  Weight: 85.352 kg

DRUGS (5)
  1. HUMIRA [Suspect]
     Indication: RHEUMATOID ARTHRITIS
     Route: 058
     Dates: start: 20050101, end: 20071029
  2. METHOTREXATE [Concomitant]
     Indication: RHEUMATOID ARTHRITIS
  3. VALPROATE SODIUM [Concomitant]
     Indication: BIPOLAR DISORDER
  4. FOLIC ACID [Concomitant]
     Indication: RHEUMATOID ARTHRITIS
  5. PROPRANOLOL [Concomitant]
     Indication: TREMOR

REACTIONS (1)
  - EAR INFECTION [None]
